FAERS Safety Report 5871849-3 (Version None)
Quarter: 2008Q3

REPORT INFORMATION
  Report Type: 
  Country: None (occurrence: None)
  Receive Date: 20080902
  Receipt Date: 20071107
  Transmission Date: 20090109
  Serious: Yes (Hospitalization)
  Sender: FDA-Public Use
  Company Number: 2007-01087FE

PATIENT
  Age: 9 Year
  Sex: Female

DRUGS (1)
  1. SOMATROPIN)) (SOMATROPIN) [Suspect]
     Indication: GROWTH HORMONE DEFICIENCY
     Dosage: SC
     Route: 058

REACTIONS (5)
  - BENIGN INTRACRANIAL HYPERTENSION [None]
  - BLINDNESS [None]
  - METABOLIC ACIDOSIS [None]
  - PAPILLOEDEMA [None]
  - STRABISMUS [None]
